FAERS Safety Report 20604406 (Version 4)
Quarter: 2022Q2

REPORT INFORMATION
  Report Type: Spontaneous
  Country: US (occurrence: US)
  Receive Date: 20220316
  Receipt Date: 20220510
  Transmission Date: 20220721
  Serious: Yes (Other)
  Sender: FDA-Public Use
  Company Number: US-BEH-2022143181

PATIENT
  Age: 26 Year
  Sex: Female
  Weight: 63.492 kg

DRUGS (4)
  1. HAEGARDA [Suspect]
     Active Substance: HUMAN C1-ESTERASE INHIBITOR
     Indication: Hereditary angioedema
     Dosage: 4000 INTERNATIONAL UNIT, BIW
     Route: 058
     Dates: start: 202102
  2. HAEGARDA [Suspect]
     Active Substance: HUMAN C1-ESTERASE INHIBITOR
     Indication: Prophylaxis
     Dosage: 5000 INTERNATIONAL UNIT/KILOGRAM
     Route: 058
  3. HAEGARDA [Suspect]
     Active Substance: HUMAN C1-ESTERASE INHIBITOR
     Indication: Hereditary angioedema
     Dosage: 5000 INTERNATIONAL UNIT/KILOGRAM, BIW
     Route: 058
  4. HAEGARDA [Suspect]
     Active Substance: HUMAN C1-ESTERASE INHIBITOR
     Indication: Prophylaxis
     Dosage: 4000 INTERNATIONAL UNIT/KILOGRAM, BIW
     Route: 058

REACTIONS (8)
  - Hereditary angioedema [Unknown]
  - Weight fluctuation [Unknown]
  - Hereditary angioedema [Unknown]
  - Intentional underdose [Unknown]
  - Insurance issue [Unknown]
  - Product supply issue [Unknown]
  - No adverse event [Unknown]
  - Therapy interrupted [Unknown]
